FAERS Safety Report 24065264 (Version 1)
Quarter: 2024Q3

REPORT INFORMATION
  Report Type: Spontaneous
  Country: FR (occurrence: FR)
  Receive Date: 20240709
  Receipt Date: 20240709
  Transmission Date: 20241016
  Serious: Yes (Other)
  Sender: PFIZER
  Company Number: FR-SEATTLE GENETICS-2023SGN02340

PATIENT
  Age: 72 Year
  Sex: Female
  Weight: 59 kg

DRUGS (14)
  1. TUKYSA [Suspect]
     Active Substance: TUCATINIB
     Indication: HER2 positive breast cancer
     Dosage: 300 MG, MORNING AND EVENING
     Route: 065
     Dates: start: 20221026, end: 20221207
  2. TUKYSA [Suspect]
     Active Substance: TUCATINIB
     Dosage: 2ND CYCLE XELODA-TUKYSA-HERCEPTIN IN 5TH LINE, 300 MG  AT MORNING AND EVENING
     Route: 065
     Dates: start: 20221116
  3. TUKYSA [Suspect]
     Active Substance: TUCATINIB
     Dosage: 3RD CYCLE OF XELODA-TUKYSA-HERCEPTIN IN 5TH LINE
     Route: 065
     Dates: start: 20221207
  4. TUKYSA [Suspect]
     Active Substance: TUCATINIB
     Dosage: 4TH CYCLE OF XELODA-TUKYSA-HERCEPTIN
     Route: 065
     Dates: start: 20230105
  5. HERCEPTIN [Suspect]
     Active Substance: TRASTUZUMAB
     Indication: HER2 positive breast cancer
     Dosage: 160 MG, QD
     Route: 065
     Dates: start: 20221026
  6. HERCEPTIN [Suspect]
     Active Substance: TRASTUZUMAB
     Dosage: 2ND CYCLE XELODA-TUKYSA-HERCEPTIN IN 5TH LINE,
     Route: 065
     Dates: start: 20221116
  7. HERCEPTIN [Suspect]
     Active Substance: TRASTUZUMAB
     Dosage: 3RD CYCLE OF XELODA-TUKYSA-HERCEPTIN IN 5TH LINE
     Route: 065
     Dates: start: 20221207
  8. HERCEPTIN [Suspect]
     Active Substance: TRASTUZUMAB
     Dosage: 4TH CYCLE OF XELODA-TUKYSA-HERCEPTIN
     Route: 065
     Dates: start: 20230105
  9. HERCEPTIN [Suspect]
     Active Substance: TRASTUZUMAB
     Dosage: 5TH CYCLE OF XELODA-TUKYSA-HERCEPTIN
     Route: 065
     Dates: start: 20230126
  10. XELODA [Suspect]
     Active Substance: CAPECITABINE
     Indication: HER2 positive breast cancer
     Dosage: 1500 MG, MORNING AND EVENING
     Route: 065
     Dates: start: 20221026
  11. XELODA [Suspect]
     Active Substance: CAPECITABINE
     Dosage: 2ND CYCLE XELODA-TUKYSA-HERCEPTIN IN 5TH LINE, 1500
     Route: 065
     Dates: start: 20221116
  12. XELODA [Suspect]
     Active Substance: CAPECITABINE
     Dosage: 3RD CYCLE OF XELODA-TUKYSA-HERCEPTIN IN 5TH LINE1000 MG, MORNING AND EVENING D1 TO D14
     Route: 065
     Dates: start: 20221207
  13. XELODA [Suspect]
     Active Substance: CAPECITABINE
     Dosage: 4TH CYCLE OF XELODA-TUKYSA-HERCEPTIN
     Route: 065
     Dates: start: 20230105
  14. XELODA [Suspect]
     Active Substance: CAPECITABINE
     Dosage: 5TH CYCLE OF XELODA-TUKYSA-HERCEPTIN
     Route: 065
     Dates: start: 20230126

REACTIONS (14)
  - Carcinoembryonic antigen increased [Unknown]
  - Aortic valve incompetence [Recovering/Resolving]
  - Hyperbilirubinaemia [Recovering/Resolving]
  - Oxygen saturation decreased [Unknown]
  - Dyspepsia [Recovered/Resolved]
  - Fatigue [Recovering/Resolving]
  - Gamma-glutamyltransferase abnormal [Unknown]
  - Lymphopenia [Recovering/Resolving]
  - Diarrhoea [Recovering/Resolving]
  - Cell death [Recovering/Resolving]
  - Blood lactate dehydrogenase abnormal [Unknown]
  - Palmar-plantar erythrodysaesthesia syndrome [Recovered/Resolved]
  - Rales [Unknown]
  - Lymphoedema [Unknown]

NARRATIVE: CASE EVENT DATE: 20221116
